FAERS Safety Report 4924471-7 (Version None)
Quarter: 2006Q1

REPORT INFORMATION
  Report Type: 
  Country: None (occurrence: None)
  Receive Date: 20060221
  Receipt Date: 20060207
  Transmission Date: 20060701
  Serious: Yes (Hospitalization)
  Sender: FDA-Public Use
  Company Number: 163-20785-06020282

PATIENT
  Age: 60 Year
  Sex: Male

DRUGS (3)
  1. THALOMID [Suspect]
     Indication: MULTIPLE MYELOMA
     Dosage: ORAL
     Route: 048
  2. DECADRON [Suspect]
     Indication: MULTIPLE MYELOMA
  3. RADIATION THERAPY [Suspect]
     Indication: MULTIPLE MYELOMA
     Dosage: 5100 CGY

REACTIONS (9)
  - INTRACRANIAL HYPOTENSION [None]
  - MENINGOCELE [None]
  - OSTEONECROSIS [None]
  - SEPTIC SHOCK [None]
  - SKIN NECROSIS [None]
  - STAPHYLOCOCCAL INFECTION [None]
  - SURGICAL PROCEDURE REPEATED [None]
  - WOUND DECOMPOSITION [None]
  - WOUND INFECTION [None]
